FAERS Safety Report 9060023 (Version 1)
Quarter: 2013Q1

REPORT INFORMATION
  Report Type: Spontaneous
  Country: JP (occurrence: JP)
  Receive Date: 20130212
  Receipt Date: 20130212
  Transmission Date: 20140127
  Serious: Yes (Hospitalization)
  Sender: FDA-Public Use
  Company Number: JP-PFIZER INC-2013051341

PATIENT
  Sex: 0

DRUGS (2)
  1. UNASYN-S [Suspect]
     Dosage: UNK
     Route: 042
  2. DALACIN [Suspect]
     Dosage: UNK

REACTIONS (3)
  - Sepsis [Not Recovered/Not Resolved]
  - Disseminated intravascular coagulation [Not Recovered/Not Resolved]
  - Drug ineffective [Not Recovered/Not Resolved]
